FAERS Safety Report 7799249-X (Version None)
Quarter: 2011Q4

REPORT INFORMATION
  Report Type: 
  Country: None (occurrence: None)
  Receive Date: 20111006
  Receipt Date: 20100927
  Transmission Date: 20120403
  Serious: No
  Sender: FDA-Public Use
  Company Number: US-GLAXOSMITHKLINE-A0883526A

PATIENT
  Sex: Female

DRUGS (1)
  1. DUAC [Suspect]
     Indication: ACNE
     Dosage: 1APP PER DAY
     Route: 061
     Dates: start: 20100927

REACTIONS (1)
  - DRUG ADMINISTRATION ERROR [None]
